FAERS Safety Report 12370332 (Version 2)
Quarter: 2016Q2

REPORT INFORMATION
  Report Type: Spontaneous
  Country: US (occurrence: US)
  Receive Date: 20160516
  Receipt Date: 20160624
  Transmission Date: 20160815
  Serious: Yes (Other)
  Sender: FDA-Public Use
  Company Number: US-ASTRAZENECA-2016SE51698

PATIENT

DRUGS (2)
  1. PEPCID [Concomitant]
     Active Substance: FAMOTIDINE
  2. NEXIUM [Suspect]
     Active Substance: ESOMEPRAZOLE MAGNESIUM
     Dosage: UNKNOWN DAILY
     Route: 048

REACTIONS (3)
  - Teeth brittle [Unknown]
  - Bone disorder [Unknown]
  - Foot fracture [Unknown]
